FAERS Safety Report 16310249 (Version 3)
Quarter: 2019Q3

REPORT INFORMATION
  Report Type: Spontaneous
  Country: US (occurrence: US)
  Receive Date: 20190514
  Receipt Date: 20190808
  Transmission Date: 20191004
  Serious: Yes (Other)
  Sender: FDA-Public Use
  Company Number: US-ASTRAZENECA-2019SE10004

PATIENT
  Age: 24425 Day
  Sex: Female

DRUGS (22)
  1. PRILOSEC OTC [Suspect]
     Active Substance: OMEPRAZOLE MAGNESIUM
     Route: 048
  2. OMEPRAZOLE. [Suspect]
     Active Substance: OMEPRAZOLE
     Indication: GASTROOESOPHAGEAL REFLUX DISEASE
     Route: 065
     Dates: start: 2014
  3. TEMAZEPAM. [Concomitant]
     Active Substance: TEMAZEPAM
  4. GABAPENTIN. [Concomitant]
     Active Substance: GABAPENTIN
  5. MUPIROCIN. [Concomitant]
     Active Substance: MUPIROCIN
  6. TORSEMIDE. [Concomitant]
     Active Substance: TORSEMIDE
  7. WARFARIN [Concomitant]
     Active Substance: WARFARIN
  8. AMPICILLIN [Concomitant]
     Active Substance: AMPICILLIN
  9. DIGOXIN. [Concomitant]
     Active Substance: DIGOXIN
  10. TRAMADOL. [Concomitant]
     Active Substance: TRAMADOL
  11. METOPROLOL. [Concomitant]
     Active Substance: METOPROLOL
  12. NAPROXEN. [Concomitant]
     Active Substance: NAPROXEN
  13. MECLIZINE [Concomitant]
     Active Substance: MECLIZINE HYDROCHLORIDE
  14. MUPIROCIN. [Concomitant]
     Active Substance: MUPIROCIN
  15. PANTOPRAZOLE [Suspect]
     Active Substance: PANTOPRAZOLE
     Indication: GASTROOESOPHAGEAL REFLUX DISEASE
     Route: 065
     Dates: start: 2014
  16. ALLOPURINOL. [Concomitant]
     Active Substance: ALLOPURINOL
  17. PREDNISONE. [Concomitant]
     Active Substance: PREDNISONE
  18. FUROSEMIDE. [Concomitant]
     Active Substance: FUROSEMIDE
  19. LISINOPRIL. [Concomitant]
     Active Substance: LISINOPRIL
  20. CIPRO [Concomitant]
     Active Substance: CIPROFLOXACIN HYDROCHLORIDE
  21. BENZONATATE. [Concomitant]
     Active Substance: BENZONATATE
  22. AZITHROMYCIN ANHYDROUS. [Concomitant]
     Active Substance: AZITHROMYCIN ANHYDROUS

REACTIONS (4)
  - Renal injury [Unknown]
  - Chronic kidney disease [Not Recovered/Not Resolved]
  - Rebound acid hypersecretion [Unknown]
  - Renal failure [Unknown]

NARRATIVE: CASE EVENT DATE: 20160720
